FAERS Safety Report 7587070-7 (Version None)
Quarter: 2011Q3

REPORT INFORMATION
  Report Type: 
  Country: None (occurrence: None)
  Receive Date: 20110701
  Receipt Date: 20110620
  Transmission Date: 20111222
  Serious: Yes (Hospitalization, Other)
  Sender: FDA-Public Use
  Company Number: PHHY2011FR55464

PATIENT
  Sex: Male

DRUGS (9)
  1. DURAGESIC-100 [Concomitant]
     Dosage: 12?G/H
  2. ASPIRIN [Concomitant]
     Dosage: 75 MG, UNK
     Dates: start: 20010101
  3. SOTALOL HYDROCHLORIDE [Concomitant]
  4. ACETAMINOPHEN [Concomitant]
  5. PERINDOPRIL ERBUMINE [Concomitant]
  6. STALEVO 100 [Suspect]
     Dosage: 100MG 1DF AT BREAKFAST, AND STALEVO 50 MG 1DF AT LUNCH, 1DF AT SNACK, 1DF AT DINER,
     Dates: end: 20110520
  7. STALEVO 100 [Suspect]
     Dosage: 50 MG, 2DF AT BREAKFAST, 1DF AT LUNCH, 1DF AT SNACK, 1DF AT DINER
     Route: 048
     Dates: start: 20110520, end: 20110522
  8. LORAZEPAM [Concomitant]
  9. LACTULOSE [Concomitant]

REACTIONS (7)
  - FRACTURE [None]
  - CATATONIA [None]
  - MUTISM [None]
  - INCORRECT DOSE ADMINISTERED [None]
  - HYPERTONIA [None]
  - FALL [None]
  - OVERDOSE [None]
